FAERS Safety Report 11106903 (Version 1)
Quarter: 2015Q2

REPORT INFORMATION
  Report Type: Spontaneous
  Country: ES (occurrence: None)
  Receive Date: 20150508
  Receipt Date: 20150508
  Transmission Date: 20150821
  Serious: Yes (Life-Threatening, Other)
  Sender: FDA-Public Use
  Company Number: ES2015059645

PATIENT
  Age: 50 Year
  Sex: Male

DRUGS (3)
  1. KIVEXA [Suspect]
     Active Substance: ABACAVIR SULFATE\LAMIVUDINE
     Indication: HIV INFECTION
     Dosage: , ORAL
     Route: 048
     Dates: start: 20150110, end: 20150420
  2. INTELENCE (ETRAVIRINE) [Concomitant]
  3. OMEPRAZOL (OMERPRAZOLE) [Concomitant]

REACTIONS (1)
  - Acute coronary syndrome [None]

NARRATIVE: CASE EVENT DATE: 20150411
